FAERS Safety Report 24685971 (Version 2)
Quarter: 2025Q1

REPORT INFORMATION
  Report Type: Spontaneous
  Country: US (occurrence: US)
  Receive Date: 20241202
  Receipt Date: 20250115
  Transmission Date: 20250409
  Serious: No
  Sender: PFIZER
  Company Number: US-PFIZER INC-202400311938

PATIENT
  Sex: Male

DRUGS (2)
  1. CIBINQO [Suspect]
     Active Substance: ABROCITINIB
     Dosage: 100 MG, DAILY
  2. CIBINQO [Suspect]
     Active Substance: ABROCITINIB
     Dosage: 200 MG, DAILY

REACTIONS (5)
  - Condition aggravated [Unknown]
  - Eye infection [Unknown]
  - Vision blurred [Unknown]
  - Influenza [Unknown]
  - Ear infection [Unknown]

NARRATIVE: CASE EVENT DATE: 20241101
